FAERS Safety Report 4320866-3 (Version None)
Quarter: 2004Q1

REPORT INFORMATION
  Report Type: 
  Country: None (occurrence: None)
  Receive Date: 20040322
  Receipt Date: 20040217
  Transmission Date: 20041129
  Serious: Yes (Other)
  Sender: FDA-Public Use
  Company Number: PHEH2004US02058

PATIENT
  Age: 48 Year
  Sex: Female

DRUGS (1)
  1. GLEEVEC [Suspect]
     Indication: CHRONIC MYELOID LEUKAEMIA
     Dosage: UNK/UNK
     Route: 048

REACTIONS (9)
  - ANGIOTENSIN CONVERTING ENZYME INCREASED [None]
  - ANTINUCLEAR ANTIBODY POSITIVE [None]
  - COLOUR VISION TESTS ABNORMAL [None]
  - HAEMOGLOBIN DECREASED [None]
  - OPTIC NEUROPATHY [None]
  - PLATELET COUNT DECREASED [None]
  - SCOTOMA [None]
  - VISUAL ACUITY REDUCED [None]
  - WHITE BLOOD CELL COUNT DECREASED [None]
